FAERS Safety Report 7061828-5 (Version None)
Quarter: 2010Q4

REPORT INFORMATION
  Report Type: 
  Country: None (occurrence: None)
  Receive Date: 20101026
  Receipt Date: 20101022
  Transmission Date: 20110411
  Serious: Yes (Other)
  Sender: FDA-Public Use
  Company Number: CA-ROCHE-735944

PATIENT
  Sex: Male

DRUGS (5)
  1. CLONAZEPAM [Suspect]
     Indication: PRODUCT USED FOR UNKNOWN INDICATION
     Route: 048
  2. NICODERM [Interacting]
     Indication: PRODUCT USED FOR UNKNOWN INDICATION
     Dosage: NICODERM 21 MG/DAY TRD, 114 MG/PAD
     Route: 062
  3. TEGRETOL [Interacting]
     Indication: PRODUCT USED FOR UNKNOWN INDICATION
     Route: 048
  4. PRIMIDONE [Concomitant]
     Route: 048
  5. DILANTIN [Concomitant]
     Route: 048

REACTIONS (4)
  - ANTICONVULSANT DRUG LEVEL BELOW THERAPEUTIC [None]
  - CONVULSION [None]
  - DRUG INTERACTION [None]
  - DRUG PRESCRIBING ERROR [None]
